FAERS Safety Report 25853636 (Version 1)
Quarter: 2025Q3

REPORT INFORMATION
  Report Type: Spontaneous
  Country: US (occurrence: None)
  Receive Date: 20250926
  Receipt Date: 20250926
  Transmission Date: 20251021
  Serious: No
  Sender: FDA-CTU
  Company Number: None

PATIENT
  Age: 92 Year
  Sex: Female

DRUGS (4)
  1. JAKAFI [Suspect]
     Active Substance: RUXOLITINIB
     Dosage: FREQUENCY : TWICE A DAY;?
     Route: 048
     Dates: start: 20250411
  2. ASPIRIN [Suspect]
     Active Substance: ASPIRIN
     Dates: start: 20250411
  3. ASPIRIN [Concomitant]
     Active Substance: ASPIRIN
     Dates: start: 20250411
  4. ACID REDUCER [Concomitant]
     Dates: start: 20250411

REACTIONS (2)
  - Hypotension [None]
  - Therapy cessation [None]

NARRATIVE: CASE EVENT DATE: 20250926
